FAERS Safety Report 12929073 (Version 1)
Quarter: 2016Q4

REPORT INFORMATION
  Report Type: Spontaneous
  Country: US (occurrence: US)
  Receive Date: 20161110
  Receipt Date: 20161110
  Transmission Date: 20170207
  Serious: No
  Sender: FDA-Public Use
  Company Number: PHEH2016US029315

PATIENT
  Sex: Male

DRUGS (1)
  1. COSENTYX [Suspect]
     Active Substance: SECUKINUMAB
     Indication: PSORIASIS
     Dosage: 300 MG, QW4
     Route: 065
     Dates: start: 201604, end: 20161019

REACTIONS (5)
  - Ear disorder [Unknown]
  - Rhinorrhoea [Unknown]
  - Dysphonia [Unknown]
  - Throat irritation [Unknown]
  - Pharyngitis [Not Recovered/Not Resolved]
